APPROVED DRUG PRODUCT: DOCETAXEL
Active Ingredient: DOCETAXEL
Strength: 20MG/ML (20MG/ML)
Dosage Form/Route: INJECTABLE;INJECTION
Application: A216677 | Product #001 | TE Code: AP
Applicant: HERITAGE PHARMACEUTICALS INC DBA AVET PHARMACEUTICALS INC
Approved: Feb 28, 2024 | RLD: No | RS: No | Type: RX